FAERS Safety Report 8351702 (Version 3)
Quarter: 2014Q4

REPORT INFORMATION
  Report Type: Spontaneous
  Country: US (occurrence: US)
  Receive Date: 20120124
  Receipt Date: 20141031
  Transmission Date: 20150529
  Serious: Yes (Hospitalization, Other)
  Sender: FDA-Public Use
  Company Number: US-GLAXOSMITHKLINE-A0962515A

PATIENT
  Sex: Female

DRUGS (4)
  1. AVANDIA [Suspect]
     Active Substance: ROSIGLITAZONE MALEATE
     Indication: DIABETES MELLITUS
     Dosage: UNK UNK, UNK
     Route: 048
     Dates: start: 200601, end: 2010
  2. ROSIGLITAZONE [Suspect]
     Active Substance: ROSIGLITAZONE
     Indication: DIABETES MELLITUS
  3. ROSIGLITAZONE [Suspect]
     Active Substance: ROSIGLITAZONE
     Indication: DIABETES MELLITUS
     Dosage: 4 MG, BID
     Route: 048
     Dates: start: 200712
  4. AVANDAMET [Suspect]
     Active Substance: METFORMIN HYDROCHLORIDE\ROSIGLITAZONE MALEATE
     Indication: DIABETES MELLITUS
     Dosage: UNK, UNK
     Route: 048
     Dates: start: 20051031, end: 200906

REACTIONS (7)
  - Vascular graft [Unknown]
  - Pericardial effusion [Unknown]
  - Cardiac failure congestive [Unknown]
  - Pulmonary oedema [Unknown]
  - Myocardial infarction [Recovering/Resolving]
  - Stent placement [Unknown]
  - Coronary artery disease [Unknown]
